FAERS Safety Report 10163474 (Version 3)
Quarter: 2014Q2

REPORT INFORMATION
  Report Type: Spontaneous
  Country: MX (occurrence: MX)
  Receive Date: 20140509
  Receipt Date: 20140523
  Transmission Date: 20141212
  Serious: Yes (Other)
  Sender: FDA-Public Use
  Company Number: MX-ELI_LILLY_AND_COMPANY-MX201404002498

PATIENT
  Age: 72 Year
  Sex: Female

DRUGS (4)
  1. HUMALOG LISPRO [Suspect]
     Indication: PRODUCT USED FOR UNKNOWN INDICATION
     Dosage: 36 IU, UNKNOWN
     Route: 065
     Dates: start: 201403
  2. HUMALOG LISPRO [Suspect]
     Dosage: 27 IU, UNKNOWN
     Route: 065
     Dates: start: 201403
  3. CYMBALTA [Concomitant]
     Indication: DEPRESSION
     Dosage: 30 MG, QD
     Route: 065
  4. CYMBALTA [Concomitant]
     Indication: DIABETIC NEUROPATHY

REACTIONS (11)
  - Colitis [Recovered/Resolved]
  - Back pain [Unknown]
  - Feeling abnormal [Unknown]
  - Hyperglycaemia [Not Recovered/Not Resolved]
  - Anger [Unknown]
  - Constipation [Unknown]
  - Swelling face [Recovered/Resolved]
  - Stress [Unknown]
  - Anxiety [Unknown]
  - Hypoglycaemia [Unknown]
  - Inappropriate schedule of drug administration [Unknown]
